FAERS Safety Report 11789662 (Version 1)
Quarter: 2015Q4

REPORT INFORMATION
  Report Type: Spontaneous
  Country: US (occurrence: None)
  Receive Date: 20151130
  Receipt Date: 20151130
  Transmission Date: 20160305
  Serious: No
  Sender: FDA-Public Use
  Company Number: None

PATIENT
  Sex: Female

DRUGS (5)
  1. GRANIX [Suspect]
     Active Substance: TBO-FILGRASTIM
     Indication: BREAST CANCER
     Dosage: UNDER THE SKIN
     Dates: start: 20151028
  2. ALEVE [Concomitant]
     Active Substance: NAPROXEN SODIUM
  3. CYCLOPHOSPHA [Concomitant]
  4. COQ10 [Concomitant]
     Active Substance: UBIDECARENONE
  5. ZOFRAN [Concomitant]
     Active Substance: ONDANSETRON HYDROCHLORIDE

REACTIONS (1)
  - Bone pain [None]
